FAERS Safety Report 8378336-1 (Version None)
Quarter: 2012Q2

REPORT INFORMATION
  Report Type: 
  Country: None (occurrence: None)
  Receive Date: 20120522
  Receipt Date: 20120521
  Transmission Date: 20120825
  Serious: Yes (Hospitalization)
  Sender: FDA-Public Use
  Company Number: NL-AMGEN-NLDCT2012031723

PATIENT
  Age: 75 Year
  Sex: Male
  Weight: 91 kg

DRUGS (10)
  1. ACENOCOUMAROL [Concomitant]
     Indication: ARRHYTHMIA
     Dosage: 1 MG, UNK
  2. PANTOPRAZOLE [Concomitant]
     Indication: DYSPEPSIA
     Dosage: 40 MG, UNK
     Route: 048
  3. CYTOXAN [Concomitant]
     Indication: DIFFUSE LARGE B-CELL LYMPHOMA
     Dosage: 1650 MG, QD
     Route: 042
     Dates: start: 20120301, end: 20120426
  4. PEGFILGRASTIM [Suspect]
     Indication: DIFFUSE LARGE B-CELL LYMPHOMA
     Dosage: 6 MG, QD
     Route: 058
     Dates: start: 20120301, end: 20120427
  5. VINCRISTINE SULFATE [Concomitant]
     Indication: DIFFUSE LARGE B-CELL LYMPHOMA
     Dosage: 2 MG, UNK
     Route: 042
     Dates: start: 20120301, end: 20120426
  6. SIMVASTATIN [Concomitant]
     Indication: HYPERLIPIDAEMIA
     Dosage: 40 MG, UNK
     Route: 048
  7. DOXORUBICIN HCL [Concomitant]
     Indication: DIFFUSE LARGE B-CELL LYMPHOMA
     Dosage: 110 MG, QD
     Route: 042
     Dates: start: 20120301, end: 20120426
  8. PREDNISONE [Concomitant]
     Indication: DIFFUSE LARGE B-CELL LYMPHOMA
     Dosage: 100 MG, QD
     Route: 048
     Dates: start: 20120301, end: 20120426
  9. METOPROLOL [Concomitant]
     Indication: ARRHYTHMIA
     Dosage: 50 MG, UNK
  10. RITUXIMAB [Concomitant]
     Indication: DIFFUSE LARGE B-CELL LYMPHOMA
     Dosage: 800 MG, QD
     Route: 042
     Dates: start: 20120301, end: 20120426

REACTIONS (1)
  - PYREXIA [None]
